FAERS Safety Report 18254810 (Version 4)
Quarter: 2022Q2

REPORT INFORMATION
  Report Type: Spontaneous
  Country: US (occurrence: US)
  Receive Date: 20200910
  Receipt Date: 20220608
  Transmission Date: 20220720
  Serious: No
  Sender: FDA-Public Use
  Company Number: US-PFIZER INC-2020349928

PATIENT
  Age: 54 Year
  Sex: Female

DRUGS (1)
  1. XELJANZ XR [Suspect]
     Active Substance: TOFACITINIB CITRATE
     Dosage: 11 MG

REACTIONS (7)
  - Pain [Unknown]
  - Dysphagia [Unknown]
  - Pruritus [Unknown]
  - Pruritus [Unknown]
  - Hyperaesthesia [Unknown]
  - Dyspepsia [Unknown]
  - Abdominal pain upper [Unknown]
